FAERS Safety Report 9181126 (Version 2)
Quarter: 2013Q3

REPORT INFORMATION
  Report Type: Spontaneous
  Country: US (occurrence: US)
  Receive Date: 20130322
  Receipt Date: 20130729
  Transmission Date: 20140515
  Serious: Yes (Hospitalization)
  Sender: FDA-Public Use
  Company Number: US-BAYER-2013-034631

PATIENT
  Age: 48 Year
  Sex: Female

DRUGS (3)
  1. YAZ [Suspect]
     Indication: DYSMENORRHOEA
     Dosage: UNK
     Dates: start: 201003, end: 201007
  2. GIANVI [Suspect]
  3. CYANOCOBALAMIN [Concomitant]

REACTIONS (9)
  - Cerebrovascular accident [None]
  - Pain [None]
  - Injury [None]
  - Visual acuity reduced [None]
  - Thrombosis [None]
  - Paradoxical embolism [None]
  - Emotional distress [None]
  - Anxiety [None]
  - Anhedonia [None]
